FAERS Safety Report 4356638-3 (Version None)
Quarter: 2004Q2

REPORT INFORMATION
  Report Type: 
  Country: None (occurrence: None)
  Receive Date: 20040507
  Receipt Date: 20040429
  Transmission Date: 20050107
  Serious: Yes (Life-Threatening)
  Sender: FDA-Public Use
  Company Number: 2004SE02414

PATIENT
  Age: 28 Year
  Sex: Male
  Weight: 94 kg

DRUGS (3)
  1. SEROQUEL [Suspect]
     Indication: AFFECTIVE DISORDER
     Dosage: 300 MG BID PO
     Route: 048
     Dates: start: 20040320, end: 20040414
  2. PAXIL [Concomitant]
  3. AKINETON [Concomitant]

REACTIONS (1)
  - MYOCARDIAL INFARCTION [None]
